FAERS Safety Report 8535147-1 (Version None)
Quarter: 2012Q3

REPORT INFORMATION
  Report Type: 
  Country: None (occurrence: None)
  Receive Date: 20120724
  Receipt Date: 20120717
  Transmission Date: 20120928
  Serious: Yes (Other)
  Sender: FDA-Public Use
  Company Number: TR-PFIZER INC-2012173572

PATIENT
  Age: 14 Year
  Sex: Female

DRUGS (12)
  1. CYTARABINE [Suspect]
     Dosage: 500 MG/M2, ON DAYS 1 AND 4
  2. CYTARABINE [Suspect]
     Dosage: 100 MG/M2, ON DAYS 1 TO 3
     Route: 042
  3. IDARUBICIN [Concomitant]
     Indication: ACUTE MYELOMONOCYTIC LEUKAEMIA
     Dosage: 12 MG/M2, ON DAY 3, 5 AND 7
  4. ETOPOSIDE [Concomitant]
     Dosage: 10 MG/M2, ON DAYS 2 TO 5
     Route: 042
  5. MITOXANTRONE [Concomitant]
     Indication: ACUTE MYELOID LEUKAEMIA
     Dosage: 10 MG/M2, ON DAYS 3 AND 4
     Route: 042
  6. CYTARABINE [Suspect]
     Indication: ACUTE MYELOMONOCYTIC LEUKAEMIA
     Dosage: 100 MG/M2, ON DAYS 1 AND 2
     Route: 042
  7. MITOXANTRONE [Concomitant]
     Dosage: 10 MG/M2, CON DAYS 3 AND 4
     Route: 042
  8. CYTARABINE [Suspect]
     Dosage: 3000 MG/M2, ON DAYS 1 TO 3
     Route: 042
  9. CYTARABINE [Suspect]
     Dosage: 1000 MG/M2, ON DAYS 1 TO 3
     Route: 042
  10. CYTARABINE [Suspect]
     Dosage: 2X100MG/M2/12 H ON DAYS 3 TO 7
     Route: 042
  11. IDARUBICIN [Concomitant]
     Dosage: 7 MG/M2, ON DAYS 3 TO 5
     Route: 042
  12. ETOPOSIDE [Concomitant]
     Indication: ACUTE MYELOMONOCYTIC LEUKAEMIA
     Dosage: 150 MG/M2, ON DAY 6 TO 8
     Route: 042

REACTIONS (1)
  - PALMAR-PLANTAR ERYTHRODYSAESTHESIA SYNDROME [None]
